FAERS Safety Report 16074642 (Version 5)
Quarter: 2019Q3

REPORT INFORMATION
  Report Type: Report from Study
  Country: US (occurrence: US)
  Receive Date: 20190314
  Receipt Date: 20190913
  Transmission Date: 20191004
  Serious: Yes (Other)
  Sender: FDA-Public Use
  Company Number: PHEH2019US010472

PATIENT
  Age: 50 Year
  Sex: Female
  Weight: 73.4 kg

DRUGS (1)
  1. GILENYA [Suspect]
     Active Substance: FINGOLIMOD HYDROCHLORIDE
     Indication: RELAPSING MULTIPLE SCLEROSIS
     Dosage: 0.5 MG, QD
     Route: 048
     Dates: start: 20190128

REACTIONS (15)
  - Sinus disorder [Unknown]
  - Vision blurred [Recovered/Resolved]
  - Photophobia [Unknown]
  - Headache [Recovered/Resolved]
  - Disturbance in attention [Unknown]
  - Visual impairment [Not Recovered/Not Resolved]
  - Musculoskeletal stiffness [Unknown]
  - Hypertension [Unknown]
  - Dry eye [Recovering/Resolving]
  - Stress [Unknown]
  - Balance disorder [Unknown]
  - Optic neuritis [Unknown]
  - Asthenia [Unknown]
  - Productive cough [Unknown]
  - Headache [Unknown]

NARRATIVE: CASE EVENT DATE: 20190211
